FAERS Safety Report 5535723-4 (Version None)
Quarter: 2007Q4

REPORT INFORMATION
  Report Type: 
  Country: None (occurrence: None)
  Receive Date: 20071204
  Receipt Date: 20071204
  Transmission Date: 20080405
  Serious: Yes (Hospitalization)
  Sender: FDA-Public Use
  Company Number: None

PATIENT
  Sex: Male
  Weight: 60 kg

DRUGS (3)
  1. QUADRAMET [Suspect]
     Dosage: RECEIVED ONLY ONE DOSE PER THE PROTOCOL ON 6/27/2007
     Dates: start: 20070627
  2. VITAMIN D [Concomitant]
     Dosage: 2800 IU  TOOK 2800 IU TOTAL FOR THIS COURSE (400IU PER DAY) BUT STARTED IN MAY OF 2007 WITH COURSE 1
  3. ZOMETA [Suspect]
     Dosage: 4 MG

REACTIONS (5)
  - DEHYDRATION [None]
  - DUODENAL ULCER [None]
  - OBSTRUCTION GASTRIC [None]
  - REFLUX OESOPHAGITIS [None]
  - URINARY TRACT INFECTION [None]
